FAERS Safety Report 12767529 (Version 1)
Quarter: 2016Q3

REPORT INFORMATION
  Report Type: Spontaneous
  Country: US (occurrence: US)
  Receive Date: 20160921
  Receipt Date: 20160921
  Transmission Date: 20161109
  Serious: Yes (Hospitalization)
  Sender: FDA-Public Use
  Company Number: US-ASTRAZENECA-2016SE97917

PATIENT
  Age: 720 Month
  Sex: Male
  Weight: 96.2 kg

DRUGS (8)
  1. SYMBICORT [Suspect]
     Active Substance: BUDESONIDE\FORMOTEROL FUMARATE DIHYDRATE
     Indication: ASTHMA
     Dosage: 160, 2 PUFFS TWICE A DAY
     Route: 055
     Dates: start: 2014
  2. XOPENEX [Concomitant]
     Active Substance: LEVALBUTEROL HYDROCHLORIDE
     Indication: ASTHMA
     Dosage: 25 UG EVERY FOUR HOURS, AS NEEDED
     Route: 055
     Dates: start: 2014
  3. SYMBICORT [Suspect]
     Active Substance: BUDESONIDE\FORMOTEROL FUMARATE DIHYDRATE
     Indication: ASTHMA
     Dosage: 160, 2 PUFFS TWICE A DAY
     Route: 055
     Dates: start: 201608
  4. XYZAL [Concomitant]
     Active Substance: LEVOCETIRIZINE DIHYDROCHLORIDE
     Indication: SINUS DISORDER
     Route: 048
     Dates: start: 201503
  5. METFORMIN [Concomitant]
     Active Substance: METFORMIN HYDROCHLORIDE
     Indication: TYPE 2 DIABETES MELLITUS
     Route: 048
     Dates: start: 201509
  6. SYMBICORT [Suspect]
     Active Substance: BUDESONIDE\FORMOTEROL FUMARATE DIHYDRATE
     Indication: SEASONAL ALLERGY
     Dosage: 160, 2 PUFFS TWICE A DAY
     Route: 055
     Dates: start: 2014
  7. SYMBICORT [Suspect]
     Active Substance: BUDESONIDE\FORMOTEROL FUMARATE DIHYDRATE
     Indication: SEASONAL ALLERGY
     Dosage: 160, 2 PUFFS TWICE A DAY
     Route: 055
     Dates: start: 201608
  8. COLISTIN [Concomitant]
     Active Substance: COLISTIN
     Indication: DIARRHOEA
     Route: 048
     Dates: start: 2000

REACTIONS (7)
  - Off label use [Unknown]
  - Irritable bowel syndrome [Unknown]
  - Product use issue [Unknown]
  - Colitis [Unknown]
  - Pneumonia [Unknown]
  - Abdominal hernia [Unknown]
  - Type 2 diabetes mellitus [Not Recovered/Not Resolved]

NARRATIVE: CASE EVENT DATE: 201504
